FAERS Safety Report 5729853-1 (Version None)
Quarter: 2008Q2

REPORT INFORMATION
  Report Type: 
  Country: None (occurrence: None)
  Receive Date: 20080502
  Receipt Date: 20080421
  Transmission Date: 20081010
  Serious: Yes (Other)
  Sender: FDA-Public Use
  Company Number: 2008010294

PATIENT
  Age: 70 Year
  Sex: Male
  Weight: 79.3795 kg

DRUGS (4)
  1. LUBRIDERM ADVANCED THERAPY MOISTURIZING (NO ACTIVE INGREDIENT) [Suspect]
     Indication: DRY SKIN
     Dosage: LATHERED HIS ELBOWS, ONCE, TOPICAL
     Route: 061
     Dates: start: 20080415, end: 20080415
  2. ANTIHISTAMINES FOR TOPICAL USE (ANTIHISTAMINES FOR TOPICAL USE) [Suspect]
     Dosage: TOPICAL
     Route: 061
     Dates: start: 20080401
  3. ZOCOR [Concomitant]
  4. DRUG, UNSPECIFIED (DRUG, UNSPECIFIED) [Concomitant]

REACTIONS (4)
  - PRURITUS [None]
  - SKIN IRRITATION [None]
  - SWELLING [None]
  - URTICARIA [None]
